FAERS Safety Report 17011694 (Version 3)
Quarter: 2019Q4

REPORT INFORMATION
  Report Type: Spontaneous
  Country: US (occurrence: US)
  Receive Date: 20191108
  Receipt Date: 20191120
  Transmission Date: 20200122
  Serious: No
  Sender: FDA-Public Use
  Company Number: US-009507513-1911USA001018

PATIENT
  Age: 39 Year
  Sex: Female

DRUGS (2)
  1. PUREGON PEN [DEVICE] [Suspect]
     Active Substance: DEVICE
  2. FOLLISTIM AQ [Suspect]
     Active Substance: FOLLITROPIN
     Indication: INFERTILITY
     Dosage: UNK
     Route: 058
     Dates: start: 20191031

REACTIONS (3)
  - Poor quality device used [Unknown]
  - No adverse event [Unknown]
  - Product packaging issue [Unknown]

NARRATIVE: CASE EVENT DATE: 20191031
